FAERS Safety Report 6889117-X (Version None)
Quarter: 2010Q3

REPORT INFORMATION
  Report Type: 
  Country: None (occurrence: None)
  Receive Date: 20100730
  Receipt Date: 20071226
  Transmission Date: 20110219
  Serious: Yes (Other)
  Sender: FDA-Public Use
  Company Number: US-PFIZER INC-2007063536

PATIENT
  Sex: Female
  Weight: 73.9 kg

DRUGS (2)
  1. LIPITOR [Suspect]
     Indication: BLOOD CHOLESTEROL INCREASED
     Dates: start: 20070531, end: 20070701
  2. BENAZEPRIL HYDROCHLORIDE [Concomitant]

REACTIONS (6)
  - ANALGESIC THERAPY [None]
  - ARTHRALGIA [None]
  - CARPAL TUNNEL SYNDROME [None]
  - MYALGIA [None]
  - MYOSITIS [None]
  - PAIN IN EXTREMITY [None]
